FAERS Safety Report 11245270 (Version 1)
Quarter: 2015Q3

REPORT INFORMATION
  Report Type: Spontaneous
  Country: US (occurrence: FR)
  Receive Date: 20150707
  Receipt Date: 20150707
  Transmission Date: 20151125
  Serious: Yes (Hospitalization, Other)
  Sender: FDA-Public Use
  Company Number: FR-FRI-1000077866

PATIENT
  Age: 77 Year
  Sex: Male

DRUGS (2)
  1. CEFTAROLINE FOSAMIL [Suspect]
     Active Substance: CEFTAROLINE FOSAMIL
     Indication: NOSOCOMIAL INFECTION
     Dosage: 400 MG
     Route: 042
     Dates: start: 20150430, end: 20150506
  2. RIMACTAN [Suspect]
     Active Substance: RIFAMPIN
     Indication: NOSOCOMIAL INFECTION
     Dosage: 900 MG
     Route: 048
     Dates: start: 20150424, end: 20150505

REACTIONS (2)
  - Agranulocytosis [Recovered/Resolved]
  - Neutropenia [Unknown]

NARRATIVE: CASE EVENT DATE: 20150507
